FAERS Safety Report 4803671-0 (Version None)
Quarter: 2005Q4

REPORT INFORMATION
  Report Type: 
  Country: None (occurrence: None)
  Receive Date: 20051017
  Receipt Date: 20050804
  Transmission Date: 20060501
  Serious: Yes (Other)
  Sender: FDA-Public Use
  Company Number: HQWYE792109AUG05

PATIENT
  Age: 56 Year
  Sex: Female
  Weight: 79.45 kg

DRUGS (2)
  1. ALAVERT [Suspect]
     Indication: HYPERSENSITIVITY
     Dosage: 1 TABLET 1X PER 1 DAY, ORAL
     Route: 048
     Dates: start: 20050629, end: 20050701
  2. TYLENOL ARTHRITIS PAIN (ACETAMINOPHEN) [Concomitant]

REACTIONS (2)
  - FALSE POSITIVE LABORATORY RESULT [None]
  - URINE CANNABINOIDS INCREASED [None]
